FAERS Safety Report 8075757-1 (Version None)
Quarter: 2012Q1

REPORT INFORMATION
  Report Type: 
  Country: None (occurrence: None)
  Receive Date: 20120125
  Receipt Date: 20120125
  Transmission Date: 20120608
  Serious: Yes (Death)
  Sender: FDA-Public Use
  Company Number: None

PATIENT
  Sex: Male
  Weight: 111.8 kg

DRUGS (2)
  1. PRADAXA [Suspect]
     Indication: ATRIAL FIBRILLATION
     Dosage: 150MG BID ORAL
     Route: 048
     Dates: end: 20120119
  2. LEVAQUIN [Suspect]
     Dosage: 750MG QD ORAL
     Route: 048

REACTIONS (16)
  - MULTI-ORGAN FAILURE [None]
  - RENAL FAILURE [None]
  - DIALYSIS [None]
  - CLOSTRIDIUM DIFFICILE COLITIS [None]
  - THROMBOSIS [None]
  - HAEMATOMA [None]
  - INTRA-ABDOMINAL HAEMORRHAGE [None]
  - METABOLIC ACIDOSIS [None]
  - INTESTINAL PERFORATION [None]
  - SECRETION DISCHARGE [None]
  - SEPSIS [None]
  - RESPIRATORY FAILURE [None]
  - HYPOTENSION [None]
  - LACTIC ACIDOSIS [None]
  - SHOCK [None]
  - NO THERAPEUTIC RESPONSE [None]
